FAERS Safety Report 5664976-7 (Version None)
Quarter: 2008Q1

REPORT INFORMATION
  Report Type: 
  Country: None (occurrence: None)
  Receive Date: 20080314
  Receipt Date: 20080303
  Transmission Date: 20080703
  Serious: Yes (Other)
  Sender: FDA-Public Use
  Company Number: FR-PFIZER INC-2008014829

PATIENT
  Sex: Male
  Weight: 118 kg

DRUGS (2)
  1. VIAGRA [Suspect]
     Route: 048
  2. GLUCOPHAGE [Concomitant]
     Route: 048

REACTIONS (3)
  - CARDIAC DISORDER [None]
  - EPISTAXIS [None]
  - MUSCULOSKELETAL CHEST PAIN [None]
